FAERS Safety Report 4725011-8 (Version None)
Quarter: 2005Q3

REPORT INFORMATION
  Report Type: 
  Country: None (occurrence: None)
  Receive Date: 20050722
  Receipt Date: 20050712
  Transmission Date: 20060218
  Serious: Yes (Hospitalization)
  Sender: FDA-Public Use
  Company Number: 2005102690

PATIENT
  Age: 37 Year
  Sex: Female

DRUGS (4)
  1. ATARAX [Suspect]
     Indication: ILL-DEFINED DISORDER
     Dosage: 200 MG, ORAL
     Route: 048
     Dates: start: 20050705, end: 20050705
  2. ZYRTEC [Suspect]
     Indication: HYPERSENSITIVITY
     Dosage: 20 MG, ORAL
     Route: 048
     Dates: start: 20050705, end: 20050705
  3. METOCLOPRAMIDE [Suspect]
     Indication: ILL-DEFINED DISORDER
     Dosage: ORAL
     Route: 048
     Dates: start: 20050705, end: 20050705
  4. VALERIANA OFFICINALIS (VALERIANA OFFICINALIS) [Suspect]
     Indication: ILL-DEFINED DISORDER
     Dosage: ORAL
     Route: 048
     Dates: start: 20050705, end: 20050705

REACTIONS (1)
  - SUICIDE ATTEMPT [None]
